FAERS Safety Report 5990391-2 (Version None)
Quarter: 2008Q4

REPORT INFORMATION
  Report Type: 
  Country: None (occurrence: None)
  Receive Date: 20081211
  Receipt Date: 20081203
  Transmission Date: 20090506
  Serious: Yes (Death, Other)
  Sender: FDA-Public Use
  Company Number: IE-AVENTIS-200814916EU

PATIENT
  Age: 86 Year
  Sex: Male

DRUGS (31)
  1. CLEXANE [Suspect]
     Route: 058
     Dates: start: 20080117
  2. ZYVOX [Suspect]
     Indication: SEPSIS
     Route: 042
     Dates: start: 20080509, end: 20080516
  3. CHLORAMPHENICOL [Concomitant]
     Route: 047
  4. PULMICORT RESPULES [Concomitant]
  5. PREDNISOLONE [Concomitant]
  6. LACTULOSE [Concomitant]
  7. MOVICOL                            /01053601/ [Concomitant]
  8. HYDROCORTISONE [Concomitant]
  9. SOLU-MEDRONE [Concomitant]
  10. LOSEC                              /00661203/ [Concomitant]
  11. LOSEC                              /00661201/ [Concomitant]
  12. ACETAMINOPHEN [Concomitant]
  13. ZYDOL (TRAMADOL) [Concomitant]
  14. VALOID [Concomitant]
  15. MAGNESIUM SULFATE [Concomitant]
  16. POTASSIUM CHLORIDE [Concomitant]
  17. ATIVAN [Concomitant]
  18. SEROQUEL [Concomitant]
  19. ZOLPIDEM TARTRATE [Concomitant]
  20. CALCICHEW D3 FORTE [Concomitant]
  21. FOLIC ACID [Concomitant]
  22. MYCOSTATIN                         /00036501/ [Concomitant]
  23. DIFLUCAN [Concomitant]
     Dosage: DOSE: 200MG/5ML
     Route: 048
  24. COMBIVENT                          /01261001/ [Concomitant]
  25. MICROLAX                           /00285401/ [Concomitant]
  26. MORPHINE [Concomitant]
  27. SERENACE [Concomitant]
  28. BACTROBAN [Concomitant]
  29. PARVOLEX [Concomitant]
  30. LASIX [Concomitant]
  31. LANSOPRAZOLE [Concomitant]

REACTIONS (2)
  - DEATH [None]
  - THROMBOCYTOPENIA [None]
